FAERS Safety Report 8840169 (Version 1)
Quarter: 2012Q4

REPORT INFORMATION
  Report Type: 
  Country: DE (occurrence: DE)
  Receive Date: 20121015
  Receipt Date: 20121015
  Transmission Date: 20130627
  Serious: Yes (Other)
  Sender: FDA-Public Use
  Company Number: DE-TEVA-359334GER

PATIENT
  Age: 86 Year
  Sex: Male
  Weight: 69 kg

DRUGS (4)
  1. MIRTAZAPINE [Suspect]
     Indication: DEPRESSION
     Dosage: 30 Milligram Daily;
     Route: 048
     Dates: start: 20120826, end: 20120912
  2. MIRTAZAPINE [Suspect]
     Indication: RESTLESSNESS
     Route: 048
     Dates: end: 2009
  3. ABILIFY [Concomitant]
     Indication: HALLUCINATION
     Dosage: 10 Milligram Daily;
     Route: 048
     Dates: start: 20120716, end: 20120901
  4. TAVOR [Concomitant]
     Indication: RESTLESSNESS
     Dosage: 1 Milligram Daily;
     Route: 048
     Dates: start: 20120606, end: 20120901

REACTIONS (2)
  - Pemphigus [Recovered/Resolved]
  - C-reactive protein increased [Recovered/Resolved]
